FAERS Safety Report 4987847-8 (Version None)
Quarter: 2006Q2

REPORT INFORMATION
  Report Type: 
  Country: None (occurrence: None)
  Receive Date: 20060424
  Receipt Date: 20060410
  Transmission Date: 20061013
  Serious: Yes (Hospitalization)
  Sender: FDA-Public Use
  Company Number: 13434

PATIENT
  Age: 52 Year
  Sex: Male

DRUGS (13)
  1. DOXORUBICIN HCL [Suspect]
     Indication: NON-HODGKIN'S LYMPHOMA
  2. VINCRISTINE [Suspect]
     Indication: NON-HODGKIN'S LYMPHOMA
  3. CYCLOPHOSPHAMIDE [Suspect]
     Indication: NON-HODGKIN'S LYMPHOMA
  4. RITUXIMAB [Suspect]
     Indication: NON-HODGKIN'S LYMPHOMA
  5. NEULASTA [Suspect]
     Indication: NON-HODGKIN'S LYMPHOMA
     Dosage: 6 MG FREQ SC
     Route: 058
  6. CARBAMAZEPINE [Concomitant]
  7. OMEPRAZOLE [Concomitant]
  8. PRAVASTATIN [Concomitant]
  9. METOPROLOL TARTRATE [Concomitant]
  10. FRUSEMIDE [Concomitant]
  11. SPIRONOLACTONE [Concomitant]
  12. WARFARIN SODIUM [Concomitant]
  13. THYROXINE [Concomitant]

REACTIONS (5)
  - CRYPTOGENIC ORGANIZING PNEUMONIA [None]
  - HYPOXIA [None]
  - NEUTROPENIA [None]
  - PLEURITIC PAIN [None]
  - RESPIRATORY FAILURE [None]
